FAERS Safety Report 13151265 (Version 1)
Quarter: 2017Q1

REPORT INFORMATION
  Report Type: Spontaneous
  Country: None (occurrence: US)
  Receive Date: 20170124
  Receipt Date: 20170124
  Transmission Date: 20170428
  Serious: Yes (Death, Hospitalization)
  Sender: FDA-Public Use
  Company Number: US-AMPHASTAR PHARMACEUTICALS, INC.-1062353

PATIENT
  Age: 93 Year
  Sex: Male
  Weight: 90.91 kg

DRUGS (4)
  1. LASIX [Suspect]
     Active Substance: FUROSEMIDE
  2. LIPITOR [Suspect]
     Active Substance: ATORVASTATIN CALCIUM
  3. COUMADIN [Suspect]
     Active Substance: WARFARIN SODIUM
  4. ENOXAPARIN SODIUM. [Suspect]
     Active Substance: ENOXAPARIN SODIUM
     Indication: INTRACARDIAC THROMBUS
     Route: 058
     Dates: start: 20161229, end: 20170102

REACTIONS (1)
  - Death [Fatal]
